FAERS Safety Report 8117415 (Version 4)
Quarter: 2014Q2

REPORT INFORMATION
  Report Type: Spontaneous
  Country: US (occurrence: US)
  Receive Date: 20110901
  Receipt Date: 20140612
  Transmission Date: 20141212
  Serious: Yes (Death, Hospitalization)
  Sender: FDA-Public Use
  Company Number: US-GLAXOSMITHKLINE-A0943049A

PATIENT
  Sex: Female

DRUGS (1)
  1. AVANDIA [Suspect]
     Indication: DIABETES MELLITUS
     Dosage: 8MG PER DAY
     Route: 048
     Dates: start: 2000, end: 20060701

REACTIONS (7)
  - Cardiac failure congestive [Fatal]
  - Renal failure [Fatal]
  - Cerebrovascular accident [Unknown]
  - Cor pulmonale [Unknown]
  - Coma [Unknown]
  - Pleural effusion [Unknown]
  - Transfusion [Unknown]
